FAERS Safety Report 9442522 (Version 2)
Quarter: 2013Q4

REPORT INFORMATION
  Report Type: Spontaneous
  Country: JP (occurrence: JP)
  Receive Date: 20130806
  Receipt Date: 20131107
  Transmission Date: 20140711
  Serious: Yes (Other)
  Sender: FDA-Public Use
  Company Number: JP-VERTEX PHARMACEUTICALS INC-2013-008565

PATIENT
  Age: 62 Year
  Sex: Male

DRUGS (11)
  1. TELAVIC [Suspect]
     Indication: CHRONIC HEPATITIS C
     Dosage: 2250 MG, QD
     Route: 048
     Dates: start: 20130522, end: 20130625
  2. TELAVIC [Suspect]
     Dosage: 1500 MG, QD
     Route: 048
     Dates: start: 20130626, end: 20130813
  3. REBETOL [Concomitant]
     Dosage: 800 MG, QD
     Route: 048
     Dates: start: 20130522, end: 20130819
  4. PEGINTRON [Concomitant]
     Dosage: 1.5 ?G/KG, QW
     Route: 058
     Dates: start: 20130522, end: 20130814
  5. LOXONIN [Concomitant]
     Route: 048
  6. PARIET [Concomitant]
     Route: 048
  7. MUCOSTA [Concomitant]
     Route: 048
  8. EURODIN [Concomitant]
     Route: 048
  9. ZYLORIC [Concomitant]
     Route: 048
  10. PLAVIX [Concomitant]
     Route: 048
  11. PREMINENT [Concomitant]
     Route: 048

REACTIONS (3)
  - Retinopathy [Unknown]
  - Decreased appetite [Not Recovered/Not Resolved]
  - Dysgeusia [Not Recovered/Not Resolved]
